FAERS Safety Report 10192388 (Version 2)
Quarter: 2014Q2

REPORT INFORMATION
  Report Type: Spontaneous
  Country: US (occurrence: US)
  Receive Date: 20140523
  Receipt Date: 20140630
  Transmission Date: 20141212
  Serious: No
  Sender: FDA-Public Use
  Company Number: US-PFIZER INC-2014137357

PATIENT
  Age: 73 Year
  Sex: Female

DRUGS (9)
  1. GABAPENTIN [Suspect]
     Indication: NERVE INJURY
     Dosage: 300 MG, 2 DAILY
  2. PREMPRO [Concomitant]
     Dosage: 0.3/1.5, 1 DAILY
  3. PRAVASTATIN SODIUM [Concomitant]
     Dosage: 50 MG, DAILY
  4. LEVOTHYROXINE [Concomitant]
     Dosage: 0.05 MG, DAILY
  5. ACIDOPHILUS [Concomitant]
     Dosage: UNK,1 DAILY
  6. ASPIRIN [Concomitant]
     Dosage: 81 MG, DAILY
  7. ALEVE [Concomitant]
     Dosage: UNK,2 DAILY
  8. B-12 [Concomitant]
     Dosage: UNK,1 DAILY
  9. OSTEO BI-FLEX [Concomitant]
     Dosage: UNK,2 DAILY

REACTIONS (1)
  - Drug ineffective [Unknown]
